FAERS Safety Report 12174994 (Version 2)
Quarter: 2016Q2

REPORT INFORMATION
  Report Type: Spontaneous
  Country: DE (occurrence: DE)
  Receive Date: 20160314
  Receipt Date: 20160413
  Transmission Date: 20160815
  Serious: Yes (Other)
  Sender: FDA-Public Use
  Company Number: DE-JNJFOC-20160304694

PATIENT
  Sex: Female
  Weight: 2.24 kg

DRUGS (5)
  1. DARUNAVIR [Suspect]
     Active Substance: DARUNAVIR
     Indication: PATHOGEN RESISTANCE
     Route: 064
     Dates: start: 20151029
  2. INTELENCE [Suspect]
     Active Substance: ETRAVIRINE
     Indication: PATHOGEN RESISTANCE
     Route: 064
     Dates: start: 20151029
  3. NORVIR [Concomitant]
     Active Substance: RITONAVIR
     Indication: PATHOGEN RESISTANCE
     Dosage: DOSE 100 (UNITS NOT SPECIFIED)
     Route: 064
     Dates: start: 20151029
  4. TIVICAY [Concomitant]
     Active Substance: DOLUTEGRAVIR SODIUM
     Indication: PATHOGEN RESISTANCE
     Route: 064
     Dates: start: 20151029
  5. STRIBILD [Concomitant]
     Active Substance: COBICISTAT\ELVITEGRAVIR\EMTRICITABINE\TENOFOVIR DISOPROXIL FUMARATE
     Indication: PATHOGEN RESISTANCE
     Route: 064
     Dates: end: 20151029

REACTIONS (2)
  - Foetal exposure during pregnancy [Recovered/Resolved]
  - Premature baby [Not Recovered/Not Resolved]
